FAERS Safety Report 25873247 (Version 1)
Quarter: 2025Q4

REPORT INFORMATION
  Report Type: Spontaneous
  Country: US (occurrence: None)
  Receive Date: 20251001
  Receipt Date: 20251001
  Transmission Date: 20260117
  Serious: Yes (Disabling)
  Sender: FDA-CTU
  Company Number: None

PATIENT
  Age: 64 Year
  Sex: Female
  Weight: 55 kg

DRUGS (11)
  1. OZEMPIC [Suspect]
     Active Substance: SEMAGLUTIDE
     Dosage: OTHER FREQUENCY : WEEKLY;?
     Route: 058
     Dates: start: 20241029, end: 20250901
  2. TICAGRELOR [Suspect]
     Active Substance: TICAGRELOR
     Indication: Intracranial aneurysm
     Dosage: FREQUENCY : TWICE A DAY;?
     Route: 048
     Dates: start: 20250829
  3. ASPIRIN [Suspect]
     Active Substance: ASPIRIN
  4. AMLODIPINE [Suspect]
     Active Substance: AMLODIPINE BESYLATE
  5. CALCIUM\VITAMIN D [Suspect]
     Active Substance: CALCIUM\VITAMIN D
  6. CLONAZEPAM [Suspect]
     Active Substance: CLONAZEPAM
  7. CYANOCOBALAMIN [Suspect]
     Active Substance: CYANOCOBALAMIN
  8. ERGOCALCIFEROL [Suspect]
     Active Substance: ERGOCALCIFEROL
  9. FOLIC ACID [Suspect]
     Active Substance: FOLIC ACID
  10. HYDROCHLOROTHIAZIDE\LOSARTAN [Suspect]
     Active Substance: HYDROCHLOROTHIAZIDE\LOSARTAN
  11. TRAZODONE [Suspect]
     Active Substance: TRAZODONE HYDROCHLORIDE

REACTIONS (2)
  - Carotid artery occlusion [None]
  - Therapy non-responder [None]

NARRATIVE: CASE EVENT DATE: 20250916
